FAERS Safety Report 6357261-1 (Version None)
Quarter: 2009Q3

REPORT INFORMATION
  Report Type: 
  Country: None (occurrence: None)
  Receive Date: 20090916
  Receipt Date: 20090903
  Transmission Date: 20100115
  Serious: Yes (Other)
  Sender: FDA-Public Use
  Company Number: PHHY2009JP36370

PATIENT
  Age: 65 Year
  Sex: Male
  Weight: 85 kg

DRUGS (6)
  1. DIOVAN [Suspect]
     Indication: HYPERTENSION
     Route: 048
  2. CIBACEN [Suspect]
     Indication: HYPERTENSION
     Route: 048
  3. AMLODIPINE BESYLATE [Concomitant]
     Indication: HYPERTENSION
  4. DOXAZOSIN MESILATE [Concomitant]
     Indication: HYPERTENSION
  5. PIOGLITAZONE HCL [Concomitant]
     Indication: DIABETES MELLITUS
     Dosage: UNK
  6. GLIBENCLAMIDE [Concomitant]
     Indication: DIABETES MELLITUS

REACTIONS (6)
  - BLOOD GLUCOSE INCREASED [None]
  - BUNDLE BRANCH BLOCK [None]
  - DEHYDRATION [None]
  - GLYCOSYLATED HAEMOGLOBIN INCREASED [None]
  - HYPERKALAEMIA [None]
  - PROCEDURAL COMPLICATION [None]
